FAERS Safety Report 7047764-9 (Version None)
Quarter: 2010Q4

REPORT INFORMATION
  Report Type: 
  Country: None (occurrence: None)
  Receive Date: 20101015
  Receipt Date: 20101005
  Transmission Date: 20110411
  Serious: Yes (Other)
  Sender: FDA-Public Use
  Company Number: US-PFIZER INC-2010127096

PATIENT
  Sex: Female
  Weight: 67.12 kg

DRUGS (6)
  1. NEURONTIN [Suspect]
     Indication: PAIN
     Dosage: 600 MG, 2X/DAY
     Route: 048
     Dates: start: 20040201, end: 20050101
  2. NEURONTIN [Suspect]
     Indication: NEURALGIA
  3. LYRICA [Suspect]
     Indication: PAIN
     Dosage: 50 MG, 5X/DAY
     Route: 048
     Dates: start: 20050201
  4. LYRICA [Suspect]
     Indication: NEURALGIA
  5. SYNTHROID [Concomitant]
     Indication: THYROID DISORDER
     Dosage: UNK
  6. HYDROXYZINE [Concomitant]
     Indication: PAIN
     Dosage: 50 MG, UNK

REACTIONS (11)
  - BLOOD CHOLESTEROL INCREASED [None]
  - DEPRESSION [None]
  - DIABETES MELLITUS [None]
  - DIARRHOEA [None]
  - DRUG DEPENDENCE [None]
  - DRUG INEFFECTIVE [None]
  - GALLBLADDER DISORDER [None]
  - HYPERTENSION [None]
  - INSOMNIA [None]
  - NAUSEA [None]
  - PAIN [None]
